FAERS Safety Report 5298822-0 (Version None)
Quarter: 2007Q2

REPORT INFORMATION
  Report Type: 
  Country: None (occurrence: None)
  Receive Date: 20070417
  Receipt Date: 20070403
  Transmission Date: 20071010
  Serious: Yes (Hospitalization, Other)
  Sender: FDA-Public Use
  Company Number: PHEH2007US03993

PATIENT
  Age: 30 Year
  Sex: Male

DRUGS (11)
  1. HYDROXYZINE [Concomitant]
  2. METHADONE HCL [Concomitant]
  3. EXJADE [Suspect]
     Indication: SERUM FERRITIN INCREASED
     Dosage: 500 MG, ONCE/SINGLE
     Route: 048
     Dates: start: 20070301, end: 20070301
  4. EXJADE [Suspect]
     Dosage: 2000 MG, QD
     Route: 048
     Dates: start: 20070403
  5. DILAUDID [Concomitant]
  6. ATENOLOL [Concomitant]
  7. LASIX [Concomitant]
  8. WARFARIN SODIUM [Concomitant]
  9. MAGNESIUM OXIDE [Concomitant]
  10. HYDROXYUREA [Concomitant]
  11. SILDENAFIL CITRATE [Concomitant]

REACTIONS (4)
  - ANGIOEDEMA [None]
  - OEDEMA PERIPHERAL [None]
  - SICKLE CELL ANAEMIA WITH CRISIS [None]
  - SWELLING FACE [None]
